FAERS Safety Report 7494253-3 (Version None)
Quarter: 2011Q2

REPORT INFORMATION
  Report Type: 
  Country: None (occurrence: None)
  Receive Date: 20110520
  Receipt Date: 20110510
  Transmission Date: 20111010
  Serious: Yes (Other)
  Sender: FDA-Public Use
  Company Number: JP-BRISTOL-MYERS SQUIBB COMPANY-15751910

PATIENT

DRUGS (2)
  1. TS-1 [Suspect]
     Indication: NON-SMALL CELL LUNG CANCER
     Dosage: DAYS 1-14 EVERY 21 DAYS
  2. TAXOL [Suspect]
     Indication: NON-SMALL CELL LUNG CANCER
     Dosage: DAY 1,8 EVERY 21 DAYS

REACTIONS (3)
  - INTERNATIONAL NORMALISED RATIO INCREASED [None]
  - DIARRHOEA [None]
  - STOMATITIS [None]
